FAERS Safety Report 10542380 (Version 2)
Quarter: 2014Q4

REPORT INFORMATION
  Report Type: Spontaneous
  Country: AU (occurrence: AU)
  Receive Date: 20141025
  Receipt Date: 20141114
  Transmission Date: 20150529
  Serious: Yes (Hospitalization, Other)
  Sender: FDA-Public Use
  Company Number: AU-AMGEN-AUSSP2014080967

PATIENT
  Age: 72 Year
  Sex: Female

DRUGS (17)
  1. LERCANIDIPINE [Concomitant]
     Active Substance: LERCANIDIPINE
     Dosage: 20 MG, QD
     Route: 048
  2. EZETIMIBE AND SIMVASTATIN [Concomitant]
     Active Substance: EZETIMIBE\SIMVASTATIN
     Dosage: 1 TABLET (10 MG - 40 MG), QD
  3. PROLIA [Suspect]
     Active Substance: DENOSUMAB
     Indication: OSTEOPOROSIS
     Dosage: 60 MG, Q6MO
     Route: 065
  4. CALCI-TAB [Concomitant]
     Dosage: 1200 MG, TID WITH MEALS
     Route: 048
  5. OLMESARTAN [Concomitant]
     Active Substance: OLMESARTAN
     Dosage: 20 MG, QD (MORNING)
     Route: 048
  6. ATENOLOL. [Concomitant]
     Active Substance: ATENOLOL
     Dosage: 25 MG, QD
     Route: 048
  7. CALCITROL                          /00508501/ [Concomitant]
     Active Substance: CALCIUM CARBONATE\ERGOCALCIFEROL\RETINOL
     Dosage: 250 NG, BID
     Route: 048
  8. HYDROMORPHONE [Concomitant]
     Active Substance: HYDROMORPHONE
     Dosage: 64 MG, QD (NIGHTLY)
     Route: 048
  9. ARANESP [Concomitant]
     Active Substance: DARBEPOETIN ALFA
     Indication: NEPHROGENIC ANAEMIA
     Dosage: 0.3 ML (30MCG), Q2WK
     Route: 058
     Dates: start: 20140201
  10. PRAZOSIN [Concomitant]
     Active Substance: PRAZOSIN
     Dosage: 5 MG, BID
     Route: 048
  11. ESCITALOPRAM [Concomitant]
     Active Substance: ESCITALOPRAM OXALATE
     Dosage: 20 MG, QD (MORNINGS)
     Route: 048
  12. PANADOL [Concomitant]
     Active Substance: ACETAMINOPHEN
     Dosage: 2 TABLETS (665 MG), QID PRN
     Route: 048
  13. METOPROLOL TARTRATE. [Concomitant]
     Active Substance: METOPROLOL TARTRATE
     Dosage: 12.5 MG, BID
     Route: 048
  14. MOXONIDINE [Concomitant]
     Active Substance: MOXONIDINE
     Dosage: 0.4 MG, QD (NIGHTLY)
     Route: 048
  15. ASPIRIN                            /00002701/ [Concomitant]
     Active Substance: ASPIRIN
     Dosage: 100 MG, QD
     Route: 048
  16. ESOMEPRAZOLE [Concomitant]
     Active Substance: ESOMEPRAZOLE
     Dosage: 20 MG, QD (MORNING)
     Route: 048
  17. METFORMIN [Concomitant]
     Active Substance: METFORMIN HYDROCHLORIDE

REACTIONS (15)
  - Oedema [Unknown]
  - Hypertonia [Unknown]
  - Lethargy [Unknown]
  - Decreased appetite [Unknown]
  - Muscle contractions involuntary [Unknown]
  - Blood parathyroid hormone increased [Unknown]
  - Acute kidney injury [Unknown]
  - Tremor [Unknown]
  - Vitamin D deficiency [Unknown]
  - Cogwheel rigidity [Unknown]
  - Hypocalcaemia [Unknown]
  - Malaise [Unknown]
  - Renal impairment [Unknown]
  - Diarrhoea [Unknown]
  - Hyperkalaemia [Unknown]
